FAERS Safety Report 6080090-3 (Version None)
Quarter: 2009Q1

REPORT INFORMATION
  Report Type: 
  Country: None (occurrence: None)
  Receive Date: 20090217
  Receipt Date: 20090217
  Transmission Date: 20090719
  Serious: Yes (Other)
  Sender: FDA-Public Use
  Company Number: PHHO2006IT10576

PATIENT
  Sex: Female
  Weight: 69 kg

DRUGS (2)
  1. ENTACAPONE-LEVODOPA-CARBIDOPA E-L-C+ [Suspect]
     Indication: PARKINSON'S DISEASE
     Route: 048
     Dates: start: 20060307
  2. REQUIP [Concomitant]
     Indication: PARKINSON'S DISEASE

REACTIONS (2)
  - ROAD TRAFFIC ACCIDENT [None]
  - SUDDEN ONSET OF SLEEP [None]
